FAERS Safety Report 4444416-6 (Version None)
Quarter: 2004Q3

REPORT INFORMATION
  Report Type: 
  Country: None (occurrence: None)
  Receive Date: 20040902
  Receipt Date: 20040819
  Transmission Date: 20050211
  Serious: Yes (Hospitalization)
  Sender: FDA-Public Use
  Company Number: 702119

PATIENT

DRUGS (7)
  1. AMEVIVE [Suspect]
     Indication: PSORIASIS
     Dosage: 15 MG QW IM
     Route: 030
     Dates: end: 20040605
  2. PREDNISONE [Concomitant]
  3. CELLCEPT [Concomitant]
  4. ACCUTANE [Concomitant]
  5. ZOLOFT [Concomitant]
  6. PROTONIX [Concomitant]
  7. PRAVACHOL [Concomitant]

REACTIONS (4)
  - CONDITION AGGRAVATED [None]
  - DEHYDRATION [None]
  - DRUG INEFFECTIVE [None]
  - PSORIASIS [None]
